FAERS Safety Report 7112903-8 (Version None)
Quarter: 2010Q4

REPORT INFORMATION
  Report Type: 
  Country: None (occurrence: None)
  Receive Date: 20101119
  Receipt Date: 20100518
  Transmission Date: 20110411
  Serious: No
  Sender: FDA-Public Use
  Company Number: US-BRISTOL-MYERS SQUIBB COMPANY-15109788

PATIENT
  Age: 69 Year
  Sex: Male
  Weight: 100 kg

DRUGS (4)
  1. AVALIDE [Suspect]
     Indication: HYPERTENSION
  2. METOPROLOL [Concomitant]
  3. AMLODIPINE [Concomitant]
  4. CRESTOR [Concomitant]

REACTIONS (1)
  - VISION BLURRED [None]
